FAERS Safety Report 10373749 (Version 1)
Quarter: 2014Q1

REPORT INFORMATION
  Report Type: Spontaneous
  Country: US (occurrence: None)
  Receive Date: 20140306
  Receipt Date: 20140306
  Transmission Date: 20141002
  Serious: Yes (Other)
  Sender: FDA-Public Use
  Company Number: 163-21880-13052079

PATIENT
  Age: 87 Year
  Sex: Male
  Weight: 143.5 kg

DRUGS (4)
  1. REVLIMID (LENALIDOMIDE) (10 MILLIGRAM, CAPSULES) [Suspect]
     Indication: MYELODYSPLASTIC SYNDROME
     Dosage: 10 MG, 21 IN 28 D, PO
     Route: 048
     Dates: start: 201110, end: 20130311
  2. ATORVASTATIN (ATORVASTATIN) [Concomitant]
  3. ASA (ACETYLSALICYLIC ACID) (ACETYLSALICYLIC ACID) [Concomitant]
  4. LEVOTHYROXINE (LEVOTHYROXINE) [Concomitant]

REACTIONS (1)
  - Platelet count decreased [None]
